FAERS Safety Report 4587624-6 (Version None)
Quarter: 2005Q1

REPORT INFORMATION
  Report Type: 
  Country: None (occurrence: None)
  Receive Date: 20050125
  Receipt Date: 20040907
  Transmission Date: 20050727
  Serious: No
  Sender: FDA-Public Use
  Company Number: USA40977642

PATIENT
  Age: 59 Year
  Sex: Female
  Weight: 69 kg

DRUGS (5)
  1. FORTEO [Suspect]
     Indication: OSTEOPOROSIS
     Dates: start: 20040705
  2. PRILOSEC [Concomitant]
  3. CALCIUM GLUCONATE [Concomitant]
  4. PAXIL [Concomitant]
  5. XANAX (ALPRAZOLAM DUM) [Concomitant]

REACTIONS (2)
  - INJECTION SITE COLDNESS [None]
  - INJECTION SITE PAIN [None]
